FAERS Safety Report 7439248-0 (Version None)
Quarter: 2011Q2

REPORT INFORMATION
  Report Type: 
  Country: None (occurrence: None)
  Receive Date: 20110421
  Receipt Date: 20110421
  Transmission Date: 20111010
  Serious: Yes (Other)
  Sender: FDA-Public Use
  Company Number: None

PATIENT
  Age: 57 Year
  Sex: Female
  Weight: 95.2554 kg

DRUGS (4)
  1. SYMBICORT [Concomitant]
  2. LEVAQUIN [Suspect]
     Indication: PNEUMONIA
     Dates: start: 20100521, end: 20100531
  3. LEVAQUIN [Suspect]
     Indication: PNEUMONIA
     Dates: start: 20100501, end: 20100515
  4. VENTOLIN [Concomitant]

REACTIONS (5)
  - TEMPOROMANDIBULAR JOINT SYNDROME [None]
  - HEADACHE [None]
  - BRUXISM [None]
  - THERAPEUTIC RESPONSE DECREASED [None]
  - MYOFASCIAL SPASM [None]
